FAERS Safety Report 9819155 (Version 1)
Quarter: 2014Q1

REPORT INFORMATION
  Report Type: Spontaneous
  Country: US (occurrence: US)
  Receive Date: 20140115
  Receipt Date: 20140115
  Transmission Date: 20141002
  Serious: No
  Sender: FDA-Public Use
  Company Number: US-ENDO PHARMACEUTICALS INC.-PERC20130148

PATIENT
  Age: 53 Year
  Sex: Male

DRUGS (1)
  1. PERCOCET [Suspect]
     Indication: SPINAL COLUMN STENOSIS
     Dosage: UNKNOWN
     Route: 048
     Dates: start: 2004, end: 201301

REACTIONS (2)
  - Depression [Not Recovered/Not Resolved]
  - Mental status changes [Not Recovered/Not Resolved]
